FAERS Safety Report 13367737 (Version 1)
Quarter: 2017Q1

REPORT INFORMATION
  Report Type: Spontaneous
  Country: CA (occurrence: CA)
  Receive Date: 20170324
  Receipt Date: 20170324
  Transmission Date: 20170429
  Serious: Yes (Life-Threatening, Hospitalization)
  Sender: FDA-Public Use
  Company Number: CA-BAYER-2017-054214

PATIENT
  Age: 41 Year
  Sex: Female

DRUGS (1)
  1. MIRENA [Suspect]
     Active Substance: LEVONORGESTREL
     Indication: MENSTRUATION IRREGULAR
     Dosage: 20 MCG/24HR, CONT
     Route: 015

REACTIONS (7)
  - Hysteroscopy [Recovering/Resolving]
  - Laparotomy [Recovering/Resolving]
  - Intestinal perforation [Recovering/Resolving]
  - Complication associated with device [Recovering/Resolving]
  - Ultrasound uterus [Recovering/Resolving]
  - Uterine perforation [Recovering/Resolving]
  - Alopecia [Recovering/Resolving]
